FAERS Safety Report 8171254-3 (Version None)
Quarter: 2012Q1

REPORT INFORMATION
  Report Type: 
  Country: None (occurrence: None)
  Receive Date: 20120228
  Receipt Date: 20120224
  Transmission Date: 20120608
  Serious: Yes (Hospitalization, Other)
  Sender: FDA-Public Use
  Company Number: DE-PFIZER INC-2012032752

PATIENT
  Age: 60 Year
  Sex: Male

DRUGS (1)
  1. NORVASC [Suspect]
     Dosage: UNK
     Dates: start: 20090101

REACTIONS (1)
  - NEURILEMMOMA [None]
